FAERS Safety Report 4621547-9 (Version None)
Quarter: 2005Q1

REPORT INFORMATION
  Report Type: 
  Country: None (occurrence: None)
  Receive Date: 20050328
  Receipt Date: 20040615
  Transmission Date: 20050727
  Serious: No
  Sender: FDA-Public Use
  Company Number: 8225

PATIENT
  Age: 70 Year
  Sex: Male

DRUGS (3)
  1. LEUCOVORIN CALCIUM [Suspect]
     Dosage: 20 MG/M2; IV
     Route: 042
  2. NEDAPLATIN [Concomitant]
  3. FLUOROURACIL [Concomitant]

REACTIONS (6)
  - ANOREXIA [None]
  - DISEASE PROGRESSION [None]
  - LEUKOPENIA [None]
  - METASTASES TO LYMPH NODES [None]
  - NEOPLASM RECURRENCE [None]
  - PYREXIA [None]
